FAERS Safety Report 4673865-6 (Version None)
Quarter: 2005Q2

REPORT INFORMATION
  Report Type: 
  Country: None (occurrence: None)
  Receive Date: 20050525
  Receipt Date: 20041116
  Transmission Date: 20051028
  Serious: Yes (Hospitalization)
  Sender: FDA-Public Use
  Company Number: US-MERCK-0411USA02875

PATIENT
  Age: 39 Year
  Sex: Female

DRUGS (2)
  1. VIOXX [Suspect]
     Indication: NECK PAIN
     Route: 048
     Dates: start: 20040220
  2. VIOXX [Suspect]
     Indication: ARTHROPATHY
     Route: 048
     Dates: start: 20040220

REACTIONS (22)
  - ABDOMINAL PAIN LOWER [None]
  - ADVERSE EVENT [None]
  - ANAEMIA [None]
  - ARTHRITIS [None]
  - BLOOD CHOLESTEROL INCREASED [None]
  - BLOOD TRIGLYCERIDES INCREASED [None]
  - CHEST PAIN [None]
  - HEMIPARESIS [None]
  - HYPERTENSION [None]
  - JOINT RANGE OF MOTION DECREASED [None]
  - LOW DENSITY LIPOPROTEIN INCREASED [None]
  - MUSCLE SPASMS [None]
  - NECK PAIN [None]
  - PAIN IN EXTREMITY [None]
  - PITTING OEDEMA [None]
  - PLEURAL EFFUSION [None]
  - POLYTRAUMATISM [None]
  - PYREXIA [None]
  - SHOULDER PAIN [None]
  - SPONDYLITIS [None]
  - TREATMENT NONCOMPLIANCE [None]
  - VENTRICULAR HYPERTROPHY [None]
